APPROVED DRUG PRODUCT: AMVAZ
Active Ingredient: AMLODIPINE MALEATE
Strength: 10MG
Dosage Form/Route: TABLET;ORAL
Application: N021435 | Product #003
Applicant: DR REDDYS LABORATORIES INC
Approved: Oct 31, 2003 | RLD: No | RS: No | Type: DISCN